FAERS Safety Report 16632146 (Version 1)
Quarter: 2019Q3

REPORT INFORMATION
  Report Type: Report from Study
  Country: DE (occurrence: DE)
  Receive Date: 20190725
  Receipt Date: 20190725
  Transmission Date: 20191004
  Serious: Yes (Hospitalization)
  Sender: FDA-Public Use
  Company Number: DE-SUN PHARMACEUTICAL INDUSTRIES LTD-2019RR-215193

PATIENT
  Age: 56 Year
  Sex: Male
  Weight: 88 kg

DRUGS (4)
  1. BISOPROLOL [Concomitant]
     Active Substance: BISOPROLOL
     Indication: ATRIAL FIBRILLATION
     Dosage: 1.35 MILLIGRAM
     Route: 048
     Dates: start: 2017
  2. ILUMETRI 100 MG, INJEKTIONSL?SUNG [Suspect]
     Active Substance: TILDRAKIZUMAB
     Indication: PSORIASIS
     Dosage: 100 MG
     Route: 058
     Dates: start: 20190117
  3. ELIQUIS [Concomitant]
     Active Substance: APIXABAN
     Indication: ATRIAL FIBRILLATION
     Dosage: 5 MILLIGRAM
     Route: 048
     Dates: start: 20190624
  4. BISOPROLOL [Concomitant]
     Active Substance: BISOPROLOL
     Indication: ARRHYTHMIA

REACTIONS (2)
  - Abdominal pain upper [Not Recovered/Not Resolved]
  - Reactive gastropathy [Not Recovered/Not Resolved]

NARRATIVE: CASE EVENT DATE: 201906
